FAERS Safety Report 21805184 (Version 2)
Quarter: 2023Q1

REPORT INFORMATION
  Report Type: Spontaneous
  Country: DE (occurrence: DE)
  Receive Date: 20230102
  Receipt Date: 20230116
  Transmission Date: 20230417
  Serious: Yes (Hospitalization)
  Sender: FDA-Public Use
  Company Number: DE-JNJFOC-20221251249

PATIENT
  Age: 49 Year
  Sex: Female
  Weight: 137 kg

DRUGS (3)
  1. DEXAMETHASONE [Suspect]
     Active Substance: DEXAMETHASONE
     Indication: Plasma cell myeloma
     Dosage: 24 MG, QD (LINE 2DATE OF THE LAST DOSAGE BEFORE EVENT ONSET: 27 APR 2020)
     Route: 065
     Dates: start: 20190429, end: 20200427
  2. REVLIMID [Suspect]
     Active Substance: LENALIDOMIDE
     Indication: Plasma cell myeloma
     Dosage: 10 MG, QD (LINE 2DATE OF THE LAST DOSAGE BEFORE EVENT ONSET:30-SEP-2019)
     Route: 065
     Dates: start: 20190729, end: 20190930
  3. DARATUMUMAB [Suspect]
     Active Substance: DARATUMUMAB
     Indication: Plasma cell myeloma
     Dosage: 2190 MG, QD (LINE 2DATE OF THE LAST DOSAGE BEFORE EVENT ONSET: 01-FEB-2021)
     Route: 042
     Dates: start: 20200525

REACTIONS (1)
  - Adenoma benign [Recovered/Resolved]

NARRATIVE: CASE EVENT DATE: 20210217
